FAERS Safety Report 4510216-1 (Version None)
Quarter: 2004Q4

REPORT INFORMATION
  Report Type: 
  Country: None (occurrence: None)
  Receive Date: 20041119
  Receipt Date: 20041111
  Transmission Date: 20050328
  Serious: No
  Sender: FDA-Public Use
  Company Number: ZONI002053

PATIENT
  Age: 54 Year
  Sex: Male

DRUGS (8)
  1. EXCEGRAN (ZONISAMIDE) [Suspect]
     Indication: EPILEPSY
     Dosage: 200 MG, ORAL
     Route: 048
     Dates: start: 20040907, end: 20041002
  2. FAMOTIDINE [Suspect]
     Indication: PROPHYLAXIS AGAINST GASTROINTESTINAL ULCER
     Dosage: 40 MG, ORAL
     Route: 048
     Dates: start: 20040907, end: 20041002
  3. LAC B (LACTOBACILLUS BIFIDUS, LYOPHILIZED) [Concomitant]
  4. NEOPHAGEN (GLYCYRRHIZINATE POTASSIUM) [Concomitant]
  5. NICHOLIN (CITICOLINE) [Concomitant]
  6. DEXTRAN (DEXTRAN) [Concomitant]
  7. VITAMEDIN (NEUROGRISEVIT) [Concomitant]
  8. ERIL [Concomitant]

REACTIONS (3)
  - NEUTROPHIL PERCENTAGE DECREASED [None]
  - PYREXIA [None]
  - WHITE BLOOD CELL COUNT DECREASED [None]
